FAERS Safety Report 9130272 (Version 4)
Quarter: 2013Q2

REPORT INFORMATION
  Report Type: Spontaneous
  Country: US (occurrence: US)
  Receive Date: 20130228
  Receipt Date: 20130503
  Transmission Date: 20140414
  Serious: Yes (Other)
  Sender: FDA-Public Use
  Company Number: US-009507513-1302USA012854

PATIENT
  Age: 56 Year
  Sex: Male

DRUGS (2)
  1. PEGINTRON [Suspect]
     Indication: HEPATITIS C
     Dosage: REDIPEN 150 MCG INJECTION USING 0.5ML
     Route: 058
     Dates: start: 20130212
  2. REBETOL [Suspect]
     Indication: HEPATITIS C
     Dosage: UNK
     Route: 048
     Dates: start: 20130212

REACTIONS (36)
  - Swollen tongue [Unknown]
  - Tooth loss [Unknown]
  - Lip dry [Unknown]
  - Parosmia [Unknown]
  - Bone pain [Unknown]
  - Vomiting [Unknown]
  - Injection site erythema [Unknown]
  - Dry mouth [Unknown]
  - Dysgeusia [Unknown]
  - Nausea [Unknown]
  - Dehydration [Unknown]
  - Depression [Unknown]
  - Influenza like illness [Unknown]
  - Injection site reaction [Unknown]
  - Anxiety disorder [Unknown]
  - Depression [Unknown]
  - Rash [Recovered/Resolved]
  - Somnolence [Unknown]
  - Influenza [Recovered/Resolved]
  - Nausea [Recovered/Resolved]
  - Fatigue [Unknown]
  - Asthenia [Unknown]
  - Decreased appetite [Unknown]
  - Tremor [Unknown]
  - Fall [Unknown]
  - Swelling face [Recovered/Resolved]
  - Nausea [Unknown]
  - Tongue ulceration [Unknown]
  - Oropharyngeal pain [Unknown]
  - Dysphagia [Unknown]
  - Pain [Unknown]
  - Influenza like illness [Unknown]
  - Diarrhoea [Unknown]
  - Myalgia [Unknown]
  - Abdominal pain [Unknown]
  - Laceration [Unknown]
